FAERS Safety Report 7527537-0 (Version None)
Quarter: 2011Q2

REPORT INFORMATION
  Report Type: 
  Country: None (occurrence: None)
  Receive Date: 20110607
  Receipt Date: 20110602
  Transmission Date: 20111010
  Serious: Yes (Other)
  Sender: FDA-Public Use
  Company Number: US-PFIZER INC-2011120665

PATIENT
  Sex: Male

DRUGS (8)
  1. THORAZINE [Concomitant]
     Dosage: UNK
  2. SERTRALINE [Concomitant]
     Dosage: UNK
     Dates: start: 20080101
  3. HYDROXYZINE [Concomitant]
     Dosage: UNK
  4. LATUDA [Suspect]
     Indication: SCHIZOPHRENIA
     Dosage: 40 MG, 1X/DAY
     Route: 048
     Dates: start: 20110427, end: 20110511
  5. PROPRANOLOL [Concomitant]
     Dosage: UNK
  6. PROLIXIN [Concomitant]
     Dosage: UNK
  7. COGENTIN [Concomitant]
     Dosage: UNK
     Dates: start: 20080101
  8. GEODON [Suspect]
     Indication: SCHIZOPHRENIA
     Dosage: 80 MG, 1X/DAY
     Route: 048
     Dates: start: 20080101

REACTIONS (2)
  - ACNE [None]
  - DYSKINESIA [None]
